FAERS Safety Report 19757560 (Version 1)
Quarter: 2021Q3

REPORT INFORMATION
  Report Type: Spontaneous
  Country: US (occurrence: US)
  Receive Date: 20210827
  Receipt Date: 20210827
  Transmission Date: 20211014
  Serious: No
  Sender: FDA-Public Use
  Company Number: US-MYLANLABS-2021M1049765

PATIENT
  Sex: Female

DRUGS (4)
  1. HALOPERIDOL TABLETS, USP [Suspect]
     Active Substance: HALOPERIDOL
     Indication: INSOMNIA
     Dosage: UNK
  2. HALOPERIDOL TABLETS, USP [Suspect]
     Active Substance: HALOPERIDOL
     Indication: THINKING ABNORMAL
  3. HALOPERIDOL TABLETS, USP [Suspect]
     Active Substance: HALOPERIDOL
     Indication: THINKING ABNORMAL
  4. HALOPERIDOL TABLETS, USP [Suspect]
     Active Substance: HALOPERIDOL
     Indication: INSOMNIA
     Dosage: UNK MILLIGRAM

REACTIONS (3)
  - Drug ineffective for unapproved indication [Unknown]
  - Restless legs syndrome [Unknown]
  - Restless arm syndrome [Unknown]
